FAERS Safety Report 6611246-6 (Version None)
Quarter: 2010Q1

REPORT INFORMATION
  Report Type: 
  Country: None (occurrence: None)
  Receive Date: 20100301
  Receipt Date: 20100301
  Transmission Date: 20100710
  Serious: Yes (Hospitalization)
  Sender: FDA-Public Use
  Company Number: None

PATIENT
  Age: 55 Year
  Sex: Female
  Weight: 62.5964 kg

DRUGS (3)
  1. LEVOTHYROXINE SODIUM [Suspect]
     Indication: DYSPEPSIA
     Dosage: 1 TABLET DAILY PO
     Route: 048
     Dates: start: 20091104
  2. LEVOTHYROXINE SODIUM [Suspect]
     Indication: HYPOTHYROIDISM
     Dosage: 1 TABLET DAILY PO
     Route: 048
     Dates: start: 20091104
  3. LEVOTHYROXINE SODIUM [Suspect]

REACTIONS (5)
  - DYSPEPSIA [None]
  - GASTROINTESTINAL MOTILITY DISORDER [None]
  - HYPOTHYROIDISM [None]
  - ILL-DEFINED DISORDER [None]
  - PRODUCT SUBSTITUTION ISSUE [None]
